FAERS Safety Report 8435090-2 (Version None)
Quarter: 2012Q2

REPORT INFORMATION
  Report Type: 
  Country: None (occurrence: None)
  Receive Date: 20120614
  Receipt Date: 20120607
  Transmission Date: 20120825
  Serious: Yes (Hospitalization)
  Sender: FDA-Public Use
  Company Number: PHFR2012GB003339

PATIENT
  Sex: Male

DRUGS (1)
  1. CLOZARIL [Suspect]
     Indication: SCHIZOPHRENIA
     Route: 048
     Dates: start: 20070919

REACTIONS (3)
  - NEUTROPHIL COUNT INCREASED [None]
  - TESTICULAR DISORDER [None]
  - WHITE BLOOD CELL COUNT INCREASED [None]
